FAERS Safety Report 14567317 (Version 1)
Quarter: 2018Q1

REPORT INFORMATION
  Report Type: Spontaneous
  Country: FR (occurrence: FR)
  Receive Date: 20180223
  Receipt Date: 20180223
  Transmission Date: 20180509
  Serious: Yes (Hospitalization, Other)
  Sender: FDA-Public Use
  Company Number: FR-PFIZER INC-2018075884

PATIENT
  Age: 29 Year
  Sex: Male

DRUGS (5)
  1. COCAINE [Suspect]
     Active Substance: COCAINE
     Indication: TOXICITY TO VARIOUS AGENTS
     Dosage: 2 G, SINGLE
     Dates: start: 20171106, end: 20171107
  2. SERTRALINE [Suspect]
     Active Substance: SERTRALINE HYDROCHLORIDE
     Dosage: 50 MG, SINGLE
     Route: 048
     Dates: start: 20171106, end: 20171107
  3. SERESTA [Suspect]
     Active Substance: OXAZEPAM
     Indication: TOXICITY TO VARIOUS AGENTS
     Dosage: 100 MG, SINGLE
     Route: 048
     Dates: start: 20171106, end: 20171107
  4. STILNOX [Suspect]
     Active Substance: ZOLPIDEM TARTRATE
     Indication: TOXICITY TO VARIOUS AGENTS
     Dosage: 20 MG, SINGLE
     Route: 048
     Dates: start: 20171106, end: 20171107
  5. METHADONE AP HP [Suspect]
     Active Substance: METHADONE HYDROCHLORIDE
     Indication: TOXICITY TO VARIOUS AGENTS
     Dosage: 80 MG, SINGLE
     Route: 048
     Dates: start: 20171106, end: 20171107

REACTIONS (5)
  - Drug abuse [Not Recovered/Not Resolved]
  - Tremor [Recovered/Resolved]
  - Drug dependence [Not Recovered/Not Resolved]
  - Toxicity to various agents [Unknown]
  - Anxiety [Recovered/Resolved]

NARRATIVE: CASE EVENT DATE: 20171106
